FAERS Safety Report 16370784 (Version 1)
Quarter: 2019Q2

REPORT INFORMATION
  Report Type: Report from Study
  Country: DE (occurrence: DE)
  Receive Date: 20190530
  Receipt Date: 20190530
  Transmission Date: 20190711
  Serious: Yes (Other)
  Sender: FDA-Public Use
  Company Number: DE-ROCHE-2324399

PATIENT
  Age: 57 Year
  Sex: Female
  Weight: 95 kg

DRUGS (3)
  1. RANIBIZUMAB. [Suspect]
     Active Substance: RANIBIZUMAB
     Dosage: 0.5 MG, 1X (LEFT EYE)
     Route: 031
     Dates: start: 20150922
  2. RANIBIZUMAB. [Suspect]
     Active Substance: RANIBIZUMAB
     Indication: VISUAL IMPAIRMENT
     Dosage: 0.5 MG, 1X (LEFT EYE)
     Route: 031
     Dates: start: 20150728, end: 20150728
  3. RANIBIZUMAB. [Suspect]
     Active Substance: RANIBIZUMAB
     Indication: DIABETIC RETINAL OEDEMA
     Dosage: 0.5 MG, 1X (LEFT EYE)
     Route: 031
     Dates: start: 20150825

REACTIONS (3)
  - Condition aggravated [Unknown]
  - Visual acuity reduced [Recovered/Resolved]
  - Diabetic retinal oedema [Recovering/Resolving]

NARRATIVE: CASE EVENT DATE: 20150825
